FAERS Safety Report 9537922 (Version 2)
Quarter: 2013Q3

REPORT INFORMATION
  Report Type: Report from Study
  Country: US (occurrence: US)
  Receive Date: 20130919
  Receipt Date: 20130927
  Transmission Date: 20140515
  Serious: Yes (Hospitalization, Other)
  Sender: FDA-Public Use
  Company Number: GXBR2013US001709

PATIENT
  Age: 59 Year
  Sex: Female

DRUGS (2)
  1. ENOXAPARIN SODIUM [Suspect]
     Indication: PULMONARY EMBOLISM
     Dosage: UNK MG, QD
     Route: 058
     Dates: start: 20130411
  2. ENOXAPARIN SODIUM [Suspect]
     Dosage: UNK MG, QD

REACTIONS (6)
  - Convulsion [Unknown]
  - Fall [Recovered/Resolved]
  - Concussion [Recovered/Resolved]
  - Laceration [Recovered/Resolved]
  - Haematoma [Recovered/Resolved]
  - Impaired healing [Recovered/Resolved]
